FAERS Safety Report 21519470 (Version 1)
Quarter: 2022Q4

REPORT INFORMATION
  Report Type: Spontaneous
  Country: US (occurrence: None)
  Receive Date: 20221027
  Receipt Date: 20221027
  Transmission Date: 20230113
  Serious: Yes (Hospitalization)
  Sender: FDA-Public Use
  Company Number: None

PATIENT
  Age: 72 Year
  Sex: Male
  Weight: 128 kg

DRUGS (1)
  1. PEMBROLIZUMAB [Suspect]
     Active Substance: PEMBROLIZUMAB
     Indication: Carcinoma in situ
     Dosage: FREQUENCY : ONCE;?OTHER ROUTE : IV;?
     Route: 050

REACTIONS (6)
  - Atrial fibrillation [None]
  - Bradycardia [None]
  - Heart rate decreased [None]
  - Blood pressure systolic increased [None]
  - Hypothyroidism [None]
  - Thyroiditis [None]

NARRATIVE: CASE EVENT DATE: 20220721
